FAERS Safety Report 5645319-1 (Version None)
Quarter: 2008Q1

REPORT INFORMATION
  Report Type: 
  Country: None (occurrence: None)
  Receive Date: 20080229
  Receipt Date: 20080221
  Transmission Date: 20080703
  Serious: Yes (Death)
  Sender: FDA-Public Use
  Company Number: B0484829A

PATIENT
  Age: 28 Year
  Sex: Female

DRUGS (1)
  1. LAMOTRIGINE [Suspect]
     Indication: GRAND MAL CONVULSION

REACTIONS (4)
  - LYMPHADENOPATHY [None]
  - MALAISE [None]
  - RASH MACULO-PAPULAR [None]
  - SUBACUTE HEPATIC FAILURE [None]
